FAERS Safety Report 23702136 (Version 2)
Quarter: 2024Q2

REPORT INFORMATION
  Report Type: Spontaneous
  Country: US (occurrence: US)
  Receive Date: 20240403
  Receipt Date: 20240404
  Transmission Date: 20240715
  Serious: Yes (Other)
  Sender: FDA-Public Use
  Company Number: US-009507513-2403USA009369

PATIENT
  Age: 74 Year
  Sex: Male

DRUGS (1)
  1. TICE BCG [Suspect]
     Active Substance: BACILLUS CALMETTE-GUERIN SUBSTRAIN TICE LIVE ANTIGEN
     Indication: Transitional cell carcinoma
     Dosage: UNK
     Route: 043

REACTIONS (3)
  - Necrotising soft tissue infection [Unknown]
  - Mycobacterial infection [Unknown]
  - Orchitis [Unknown]
